FAERS Safety Report 12896588 (Version 1)
Quarter: 2016Q4

REPORT INFORMATION
  Report Type: Spontaneous
  Country: US (occurrence: US)
  Receive Date: 20161028
  Receipt Date: 20161028
  Transmission Date: 20170207
  Serious: No
  Sender: FDA-Public Use
  Company Number: None

PATIENT
  Sex: Female

DRUGS (1)
  1. HYOSCYAMINE. [Suspect]
     Active Substance: HYOSCYAMINE
     Route: 048
     Dates: start: 20150827, end: 20161028

REACTIONS (5)
  - Abdominal distension [None]
  - Product use issue [None]
  - Flatulence [None]
  - Abdominal pain [None]
  - Product quality issue [None]
